FAERS Safety Report 9025823 (Version 1)
Quarter: 2013Q1

REPORT INFORMATION
  Report Type: Spontaneous
  Country: US (occurrence: US)
  Receive Date: 20130123
  Receipt Date: 20130123
  Transmission Date: 20140127
  Serious: No
  Sender: FDA-Public Use
  Company Number: US-BIOGENIDEC-2013BI004891

PATIENT
  Sex: Female

DRUGS (7)
  1. AVONEX [Suspect]
     Indication: MULTIPLE SCLEROSIS
     Route: 030
     Dates: start: 19960613, end: 20080417
  2. AVONEX [Suspect]
     Indication: MULTIPLE SCLEROSIS
     Route: 030
     Dates: start: 20080506
  3. BACLOFEN [Concomitant]
     Indication: ARTHRALGIA
  4. PROVENTIL [Concomitant]
     Indication: ASTHMA
  5. ADVAIR 250 [Concomitant]
     Indication: ASTHMA
  6. NEBULIZER TREATMENT (NOS) [Concomitant]
     Indication: ASTHMA
  7. VITAMIN D3 [Concomitant]
     Indication: PRODUCT USED FOR UNKNOWN INDICATION

REACTIONS (18)
  - Central nervous system lesion [Unknown]
  - Stress [Recovered/Resolved]
  - Gastrooesophageal reflux disease [Not Recovered/Not Resolved]
  - Gait disturbance [Unknown]
  - Deafness unilateral [Recovered/Resolved]
  - Incontinence [Not Recovered/Not Resolved]
  - Migraine [Recovered/Resolved]
  - Amnesia [Not Recovered/Not Resolved]
  - Incorrect route of drug administration [Recovered/Resolved]
  - Pain in extremity [Not Recovered/Not Resolved]
  - Depression [Not Recovered/Not Resolved]
  - Headache [Recovered/Resolved]
  - Muscle spasms [Recovered/Resolved]
  - Multiple sclerosis relapse [Not Recovered/Not Resolved]
  - Malaise [Unknown]
  - Pain [Unknown]
  - Arthritis [Unknown]
  - Influenza like illness [Unknown]
